FAERS Safety Report 15134993 (Version 1)
Quarter: 2018Q3

REPORT INFORMATION
  Report Type: Spontaneous
  Country: FR (occurrence: FR)
  Receive Date: 20180712
  Receipt Date: 20180712
  Transmission Date: 20181010
  Serious: Yes (Death)
  Sender: FDA-Public Use
  Company Number: FR-ELI_LILLY_AND_COMPANY-FR201807004341

PATIENT
  Age: 27 Year
  Sex: Female
  Weight: 110 kg

DRUGS (7)
  1. PROZAC [Suspect]
     Active Substance: FLUOXETINE HYDROCHLORIDE
     Indication: BIPOLAR DISORDER
     Dosage: 240 DF, UNKNOWN
     Route: 048
     Dates: start: 20180530, end: 20180530
  2. CLOMIPRAMINE HCL [Suspect]
     Active Substance: CLOMIPRAMINE
     Indication: BIPOLAR DISORDER
     Dosage: 120 DF, UNKNOWN
     Route: 048
     Dates: start: 20180530, end: 20180530
  3. LOXAPAC                            /00401801/ [Suspect]
     Active Substance: LOXAPINE
     Indication: BIPOLAR DISORDER
     Dosage: 120 DF, UNKNOWN
     Route: 048
     Dates: start: 20180530, end: 20180530
  4. BROMAZEPAM [Suspect]
     Active Substance: BROMAZEPAM
     Indication: BIPOLAR DISORDER
     Dosage: 90 DF, UNKNOWN
     Route: 048
     Dates: start: 20180530, end: 20180530
  5. COUMADINE [Concomitant]
     Active Substance: WARFARIN SODIUM
     Indication: STENT PLACEMENT
     Dosage: 1 DF, DAILY
     Route: 048
     Dates: start: 201412, end: 20180530
  6. TERCIAN                            /00759301/ [Suspect]
     Active Substance: CYAMEMAZINE
     Indication: BIPOLAR DISORDER
     Dosage: 60 DF, UNKNOWN
     Route: 048
     Dates: start: 20180530, end: 20180530
  7. MIANSERINE HCL [Suspect]
     Active Substance: MIANSERIN HYDROCHLORIDE
     Indication: BIPOLAR DISORDER
     Dosage: 60 DF, UNKNOWN
     Route: 048
     Dates: start: 20180530, end: 20180530

REACTIONS (2)
  - Poisoning deliberate [Fatal]
  - Toxicity to various agents [Fatal]

NARRATIVE: CASE EVENT DATE: 20180530
